FAERS Safety Report 8561744-3 (Version None)
Quarter: 2012Q3

REPORT INFORMATION
  Report Type: 
  Country: None (occurrence: None)
  Receive Date: 20120802
  Receipt Date: 20120723
  Transmission Date: 20120928
  Serious: Yes (Hospitalization, Other)
  Sender: FDA-Public Use
  Company Number: US-CELGENEUS-163-21880-12041616

PATIENT
  Sex: Male

DRUGS (7)
  1. ACYCLOVIR [Concomitant]
     Route: 065
  2. LASIX [Concomitant]
     Indication: FLUID RETENTION
     Route: 065
  3. REVLIMID [Suspect]
     Dosage: 25 MILLIGRAM
     Route: 048
     Dates: start: 20100401, end: 20101201
  4. POTASSIUM [Concomitant]
     Indication: FLUID RETENTION
     Route: 065
  5. PREGABALIN [Concomitant]
     Indication: POST HERPETIC NEURALGIA
     Route: 065
  6. REVLIMID [Suspect]
     Indication: AMYLOIDOSIS
  7. DEXAMETHASONE [Concomitant]
     Indication: AMYLOIDOSIS
     Route: 065

REACTIONS (1)
  - THROMBOTIC MICROANGIOPATHY [None]
